FAERS Safety Report 16947398 (Version 2)
Quarter: 2019Q4

REPORT INFORMATION
  Report Type: Spontaneous
  Country: TR (occurrence: TR)
  Receive Date: 20191022
  Receipt Date: 20191029
  Transmission Date: 20200122
  Serious: Yes (Other)
  Sender: FDA-Public Use
  Company Number: TR-PFIZER INC-2019453297

PATIENT
  Sex: Male

DRUGS (1)
  1. LYRICA [Suspect]
     Active Substance: PREGABALIN
     Indication: ARTHRALGIA
     Dosage: UNK

REACTIONS (4)
  - Product use in unapproved indication [Unknown]
  - Physical assault [Unknown]
  - Drug dependence [Unknown]
  - Off label use [Unknown]

NARRATIVE: CASE EVENT DATE: 20191016
